FAERS Safety Report 25836412 (Version 1)
Quarter: 2025Q3

REPORT INFORMATION
  Report Type: Spontaneous
  Country: RU (occurrence: RU)
  Receive Date: 20250923
  Receipt Date: 20250923
  Transmission Date: 20251021
  Serious: Yes (Other)
  Sender: EISAI
  Company Number: RU-Eisai-EC-2025-196874

PATIENT
  Age: 53 Year
  Sex: Female

DRUGS (3)
  1. LENVIMA [Suspect]
     Active Substance: LENVATINIB
     Indication: Endometrial adenocarcinoma
     Route: 048
     Dates: start: 20240808, end: 20250210
  2. LENVIMA [Suspect]
     Active Substance: LENVATINIB
     Route: 048
     Dates: start: 20250212, end: 20250630
  3. LENVIMA [Suspect]
     Active Substance: LENVATINIB
     Route: 048
     Dates: start: 20250701

REACTIONS (2)
  - Tubulointerstitial nephritis [Recovering/Resolving]
  - Nephroangiosclerosis [Recovering/Resolving]

NARRATIVE: CASE EVENT DATE: 20250608
